FAERS Safety Report 4880216-0 (Version None)
Quarter: 2006Q1

REPORT INFORMATION
  Report Type: 
  Country: None (occurrence: None)
  Receive Date: 20060111
  Receipt Date: 20051216
  Transmission Date: 20060701
  Serious: Yes (Disabling, Other)
  Sender: FDA-Public Use
  Company Number: 2005114475

PATIENT
  Age: 54 Year
  Sex: Male

DRUGS (6)
  1. VIAGRA [Suspect]
     Indication: ERECTILE DYSFUNCTION
     Dosage: (100 MG)
     Dates: end: 20050101
  2. HYDROCHLOROTHIAZIDE [Concomitant]
  3. NORVASC [Concomitant]
  4. LIPITOR [Concomitant]
  5. CAPTOPRIL [Concomitant]
  6. ALPHAGAN [Concomitant]

REACTIONS (45)
  - ARTERIOSCLEROSIS [None]
  - ARTHRALGIA [None]
  - BLINDNESS UNILATERAL [None]
  - BLOOD CHOLESTEROL INCREASED [None]
  - BLOOD CREATINE INCREASED [None]
  - BLOOD TRIGLYCERIDES INCREASED [None]
  - CATARACT [None]
  - CATHETER RELATED COMPLICATION [None]
  - CHALAZION [None]
  - COLOUR BLINDNESS [None]
  - DIABETIC NEUROPATHY [None]
  - DIABETIC RETINAL OEDEMA [None]
  - DIABETIC RETINOPATHY [None]
  - DIZZINESS [None]
  - EYE HAEMORRHAGE [None]
  - EYE PAIN [None]
  - EYE PRURITUS [None]
  - EYELID CYST [None]
  - GLARE [None]
  - HEADACHE [None]
  - IMPAIRED DRIVING ABILITY [None]
  - IRITIS [None]
  - LACRIMATION INCREASED [None]
  - LENTICULAR OPACITIES [None]
  - MACULAR OEDEMA [None]
  - MACULOPATHY [None]
  - NERVE INJURY [None]
  - OCULAR HYPERTENSION [None]
  - OPTIC ATROPHY [None]
  - OPTIC ISCHAEMIC NEUROPATHY [None]
  - PHOTOPSIA [None]
  - RETINAL ANEURYSM [None]
  - RETINAL DISORDER [None]
  - RETINAL EXUDATES [None]
  - RETINAL HAEMORRHAGE [None]
  - RETINAL ISCHAEMIA [None]
  - RETINAL SCAR [None]
  - SCOTOMA [None]
  - TUNNEL VISION [None]
  - VISION BLURRED [None]
  - VISUAL ACUITY REDUCED [None]
  - VISUAL DISTURBANCE [None]
  - VISUAL FIELD DEFECT [None]
  - VITREOUS FLOATERS [None]
  - VITREOUS HAEMORRHAGE [None]
